FAERS Safety Report 6161951-3 (Version None)
Quarter: 2009Q2

REPORT INFORMATION
  Report Type: 
  Country: None (occurrence: None)
  Receive Date: 20090417
  Receipt Date: 20090406
  Transmission Date: 20091009
  Serious: Yes (Life-Threatening, Other)
  Sender: FDA-Public Use
  Company Number: 58558

PATIENT
  Sex: Female

DRUGS (1)
  1. PROPOFOL [Suspect]
     Indication: ANAESTHESIA
     Dates: start: 20030923, end: 20060912

REACTIONS (5)
  - HEPATITIS B [None]
  - INFECTION [None]
  - MEDICATION ERROR [None]
  - TRANSMISSION OF AN INFECTIOUS AGENT VIA A MEDICINAL PRODUCT [None]
  - WRONG TECHNIQUE IN DRUG USAGE PROCESS [None]
